FAERS Safety Report 4798252-1 (Version None)
Quarter: 2005Q4

REPORT INFORMATION
  Report Type: 
  Country: None (occurrence: None)
  Receive Date: 20051014
  Receipt Date: 20051003
  Transmission Date: 20060501
  Serious: Yes (Other)
  Sender: FDA-Public Use
  Company Number: US-JNJFOC-20051000967

PATIENT
  Sex: Female
  Weight: 53.98 kg

DRUGS (2)
  1. REMICADE [Suspect]
     Indication: CROHN'S DISEASE
     Route: 042
  2. VEXISAXEN [Concomitant]
     Indication: CROHN'S DISEASE

REACTIONS (2)
  - ARTHRITIS [None]
  - SEPSIS [None]
